FAERS Safety Report 17559442 (Version 9)
Quarter: 2021Q3

REPORT INFORMATION
  Report Type: Report from Study
  Country: CO (occurrence: CO)
  Receive Date: 20200319
  Receipt Date: 20210712
  Transmission Date: 20211014
  Serious: Yes (Hospitalization, Other)
  Sender: FDA-Public Use
  Company Number: CO-ASTELLAS-2018US050587

PATIENT
  Age: 22 Year
  Sex: Female
  Weight: 24 kg

DRUGS (17)
  1. PREDNISOLONE. [Concomitant]
     Active Substance: PREDNISOLONE
     Indication: TRANSPLANT
     Route: 048
     Dates: start: 20181009
  2. MYCOPHENOLATE [Interacting]
     Active Substance: MYCOPHENOLIC ACID
     Indication: RENAL TRANSPLANT
     Route: 048
     Dates: start: 20181009
  3. FOLIC ACID. [Concomitant]
     Active Substance: FOLIC ACID
     Indication: PRODUCT USED FOR UNKNOWN INDICATION
     Dosage: UNK UNK, UNKNOWN FREQ.
     Route: 065
  4. TACROLIMUS. [Interacting]
     Active Substance: TACROLIMUS
     Dosage: 5 MG, ONCE DAILY (1 CAPSULE OF 5 MG)
     Route: 048
     Dates: start: 20190808, end: 201908
  5. TACROLIMUS. [Interacting]
     Active Substance: TACROLIMUS
     Dosage: 5.5 MG, ONCE DAILY (1 CAPSULE OF 5MG + 1 CAPSULE OF 0.5MG)
     Route: 048
     Dates: start: 201908, end: 202002
  6. ALUMINUM HYDROXIDE. [Concomitant]
     Active Substance: ALUMINUM HYDROXIDE
     Indication: PRODUCT USED FOR UNKNOWN INDICATION
     Dosage: UNK UNK, UNKNOWN FREQ.
     Route: 065
  7. RANITIDINE. [Concomitant]
     Active Substance: RANITIDINE
     Indication: GASTRIC DISORDER
     Route: 048
     Dates: start: 201810
  8. PYRIDOXINE [Concomitant]
     Active Substance: PYRIDOXINE
     Indication: PRODUCT USED FOR UNKNOWN INDICATION
     Dosage: UNK UNK, UNKNOWN FREQ.
     Route: 065
  9. TACROLIMUS. [Interacting]
     Active Substance: TACROLIMUS
     Dosage: 10 MG, ONCE DAILY (2 CAPSULES OF 5MG)
     Route: 048
     Dates: start: 202103
  10. MYCOPHENOLATE [Interacting]
     Active Substance: MYCOPHENOLIC ACID
     Route: 048
  11. TACROLIMUS. [Suspect]
     Active Substance: TACROLIMUS
     Indication: RENAL TRANSPLANT
     Dosage: 6 MG, ONCE DAILY (1 CAPSULE OF 1 MG AND CAPSULE OF 5 MG)
     Route: 048
     Dates: start: 20181009, end: 20190807
  12. TACROLIMUS. [Interacting]
     Active Substance: TACROLIMUS
     Dosage: 5 MG, ONCE DAILY (1 CAPSULE OF 5 MG)
     Route: 048
     Dates: start: 202002, end: 202003
  13. TACROLIMUS. [Interacting]
     Active Substance: TACROLIMUS
     Dosage: 9 MG, ONCE DAILY (1 CAPSULE OF 5MG + 4 CAPSULES OF 1MG)
     Route: 048
     Dates: start: 202003, end: 20200414
  14. TACROLIMUS. [Interacting]
     Active Substance: TACROLIMUS
     Dosage: 12 MG, ONCE DAILY (2 CAPSULES OF 5MG + 2 CAPSULES OF 1MG)
     Route: 048
     Dates: start: 20200415
  15. TACROLIMUS. [Interacting]
     Active Substance: TACROLIMUS
     Route: 048
     Dates: start: 202106
  16. PREDNISOLONE. [Concomitant]
     Active Substance: PREDNISOLONE
     Indication: IMMUNE SYSTEM DISORDER
     Dosage: 0.5 DF, ONCE DAILY
     Route: 048
  17. LEVETIRACETAM. [Concomitant]
     Active Substance: LEVETIRACETAM
     Indication: SEIZURE
     Dosage: 1500 MG, UNKNOWN FREQ. SINCE CHILDHOOD
     Route: 048

REACTIONS (19)
  - Tuberculosis [Recovering/Resolving]
  - Immunosuppressant drug level decreased [Not Recovered/Not Resolved]
  - Blood pressure decreased [Recovering/Resolving]
  - Immunosuppressant drug level decreased [Not Recovered/Not Resolved]
  - Transplant abscess [Recovered/Resolved]
  - Secondary immunodeficiency [Recovered/Resolved]
  - Blood creatinine increased [Recovered/Resolved]
  - Nausea [Recovering/Resolving]
  - Vomiting [Recovered/Resolved]
  - Weight increased [Not Recovered/Not Resolved]
  - Drug interaction [Unknown]
  - Kidney enlargement [Recovered/Resolved]
  - Decreased appetite [Unknown]
  - Pneumonia [Recovered/Resolved]
  - Weight decreased [Unknown]
  - Pneumonia [Recovered/Resolved]
  - Tachycardia [Not Recovered/Not Resolved]
  - Immunosuppressant drug level increased [Recovering/Resolving]
  - Pneumonitis [Recovered/Resolved]

NARRATIVE: CASE EVENT DATE: 20181009
